FAERS Safety Report 19995394 (Version 1)
Quarter: 2021Q4

REPORT INFORMATION
  Report Type: Spontaneous
  Country: US (occurrence: US)
  Receive Date: 20211026
  Receipt Date: 20211026
  Transmission Date: 20220303
  Serious: Yes (Hospitalization)
  Sender: FDA-Public Use
  Company Number: None

PATIENT
  Age: 62 Year
  Sex: Female
  Weight: 76.5 kg

DRUGS (13)
  1. REGEN-COV [Suspect]
     Active Substance: CASIRIVIMAB\IMDEVIMAB
     Indication: COVID-19
     Dosage: ?          OTHER FREQUENCY:ONCE;
     Route: 042
     Dates: start: 20211019, end: 20211019
  2. DEXAMETHASONE [Concomitant]
     Active Substance: DEXAMETHASONE
     Dates: start: 20211023
  3. PREDNISONE [Concomitant]
     Active Substance: PREDNISONE
     Dates: start: 20080221
  4. Ticagerlor [Concomitant]
     Dates: start: 20211003
  5. TACROLIMUS [Concomitant]
     Active Substance: TACROLIMUS
     Dates: start: 20210215
  6. REMDESIVIR [Concomitant]
     Active Substance: REMDESIVIR
     Dates: start: 20211025
  7. METOCLOPRAMIDE [Concomitant]
     Active Substance: METOCLOPRAMIDE
     Dates: start: 20211019
  8. INSULIN NOS [Concomitant]
     Active Substance: INSULIN NOS
     Dates: start: 20210621
  9. mycophenolate mofetil (CELLCEPT) [Concomitant]
     Dates: start: 20080909
  10. CLONIDINE [Concomitant]
     Active Substance: CLONIDINE
     Dates: start: 20060410
  11. METFORMIN [Concomitant]
     Active Substance: METFORMIN HYDROCHLORIDE
     Dates: start: 20180821
  12. ONDANSETRON [Concomitant]
     Active Substance: ONDANSETRON
     Dates: start: 20211019
  13. EPINEPHRINE [Concomitant]
     Active Substance: EPINEPHRINE
     Dates: start: 20211019, end: 20211019

REACTIONS (5)
  - Hypoxia [None]
  - COVID-19 pneumonia [None]
  - Oxygen saturation decreased [None]
  - Lung opacity [None]
  - COVID-19 pneumonia [None]

NARRATIVE: CASE EVENT DATE: 20211023
